FAERS Safety Report 7671757-1 (Version None)
Quarter: 2011Q3

REPORT INFORMATION
  Report Type: 
  Country: None (occurrence: None)
  Receive Date: 20110804
  Receipt Date: 20110720
  Transmission Date: 20111222
  Serious: Yes (Death)
  Sender: FDA-Public Use
  Company Number: TPA2011A02064

PATIENT
  Age: 34 Year
  Sex: Male
  Weight: 171.4597 kg

DRUGS (6)
  1. ACTOPLUS MET [Suspect]
     Indication: GLUCOSE TOLERANCE IMPAIRED
     Dosage: 15/850, BID, PER ORAL
     Route: 048
     Dates: start: 20090529, end: 20110512
  2. ALTACE [Concomitant]
  3. NORVASC [Concomitant]
  4. VITAMIN D [Concomitant]
  5. MULTIVITAMIN [Suspect]
     Dosage: 1 IN 1 D
  6. DEPO-TESTOSTERONE [Concomitant]

REACTIONS (5)
  - OEDEMA PERIPHERAL [None]
  - PULMONARY EMBOLISM [None]
  - DEEP VEIN THROMBOSIS [None]
  - HEADACHE [None]
  - OROPHARYNGEAL PAIN [None]
